FAERS Safety Report 22246913 (Version 2)
Quarter: 2023Q2

REPORT INFORMATION
  Report Type: Report from Study
  Country: ZA (occurrence: ZA)
  Receive Date: 20230424
  Receipt Date: 20230425
  Transmission Date: 20230721
  Serious: Yes (Hospitalization)
  Sender: FDA-Public Use
  Company Number: ZA-009507513-1910ZAF013346

PATIENT
  Age: 65 Year
  Sex: Female
  Weight: 46.4 kg

DRUGS (23)
  1. PLACEBO [Suspect]
     Active Substance: UNSPECIFIED INGREDIENT
     Indication: Ovarian epithelial cancer
     Dosage: UNK UNK, BID
  2. PEMBROLIZUMAB [Suspect]
     Active Substance: PEMBROLIZUMAB
     Indication: Ovarian epithelial cancer
     Dosage: 200 MILLIGRAM, Q3W
     Route: 042
     Dates: start: 20191002, end: 20191002
  3. CARBOPLATIN [Suspect]
     Active Substance: CARBOPLATIN
     Indication: Ovarian epithelial cancer
     Dosage: AREA UNDER THE CURVE (AUC) 5 OR AUC 6, Q3W
     Route: 042
     Dates: start: 20190911, end: 20191002
  4. CARBOPLATIN [Suspect]
     Active Substance: CARBOPLATIN
     Dosage: AREA UNDER THE CURVE (AUC) 5 OR AUC 6, Q3W
     Route: 042
     Dates: start: 20191120, end: 20191120
  5. PACLITAXEL [Suspect]
     Active Substance: PACLITAXEL
     Indication: Ovarian epithelial cancer
     Dosage: 175 MILLIGRAM/SQ. METER, Q3W
     Route: 042
     Dates: start: 20190911, end: 20191002
  6. PACLITAXEL [Suspect]
     Active Substance: PACLITAXEL
     Dosage: 175 MILLIGRAM/SQ. METER, Q3W
     Route: 042
     Dates: start: 20191120, end: 20191120
  7. PACLITAXEL [Suspect]
     Active Substance: PACLITAXEL
     Dosage: 175 MILLIGRAM/SQ. METER, Q3W
     Route: 042
     Dates: start: 20200205
  8. ATIVAN [Concomitant]
     Active Substance: LORAZEPAM
     Indication: Prophylaxis
     Dosage: 1 MILLIGRAM, ONCE
     Route: 060
     Dates: start: 20190911
  9. ATIVAN [Concomitant]
     Active Substance: LORAZEPAM
     Indication: Anxiety
     Dosage: 1 MILLIGRAM, ONCE
     Route: 060
     Dates: start: 20191002, end: 20191002
  10. RANITIDINE [Concomitant]
     Active Substance: RANITIDINE
     Indication: Prophylaxis
     Dosage: TOTAL DAILY DOSE: 4 MILLIGRAM, FREQUENCY: CONTINUOUS
     Route: 048
     Dates: start: 20190911
  11. PROCHLORPERAZINE MALEATE [Concomitant]
     Active Substance: PROCHLORPERAZINE MALEATE
     Indication: Prophylaxis of nausea and vomiting
     Dosage: TOTAL DAILY DOSE: 5 MILLIGRAM, PRN
     Route: 048
     Dates: start: 20190914, end: 20191218
  12. PANTOPRAZOLE SODIUM [Concomitant]
     Active Substance: PANTOPRAZOLE SODIUM
     Indication: Prophylaxis
     Dosage: [11]  40 MG DAILY, FREQ: QD
     Route: 048
     Dates: start: 20190912, end: 20191217
  13. PALEXIA [Concomitant]
     Active Substance: TAPENTADOL HYDROCHLORIDE
     Indication: Pain
     Dosage: [24]  200 MG DAILY, FREQ: BID
     Route: 048
     Dates: start: 20190920, end: 20191016
  14. PALEXIA [Concomitant]
     Active Substance: TAPENTADOL HYDROCHLORIDE
     Indication: Urinary incontinence
     Dosage: [13]  200 MG DAILY, FREQ: BID
     Route: 048
     Dates: start: 20190920, end: 20191016
  15. PROPIVERINE HYDROCHLORIDE [Concomitant]
     Active Substance: PROPIVERINE HYDROCHLORIDE
     Indication: Cystocele
     Dosage: [14]  15 MG DAILY, FREQ: QD
     Route: 048
     Dates: start: 20190920, end: 20191115
  16. PHENERGAN [Concomitant]
     Active Substance: PROMETHAZINE HYDROCHLORIDE
     Indication: Allergy prophylaxis
     Dosage: 25 MILLIGRAM, ONCE
     Route: 048
     Dates: start: 20191002, end: 20191002
  17. BETAMETHASONE SODIUM PHOSPHATE [Concomitant]
     Active Substance: BETAMETHASONE SODIUM PHOSPHATE
     Indication: Allergy prophylaxis
     Dosage: [92]  8 MG DAILY, FREQ: ONCE
     Route: 042
     Dates: start: 20191002, end: 20191002
  18. BETAMETHASONE SODIUM PHOSPHATE [Concomitant]
     Active Substance: BETAMETHASONE SODIUM PHOSPHATE
     Indication: Hypersensitivity
  19. ONDANSETRON [Concomitant]
     Active Substance: ONDANSETRON
     Indication: Prophylaxis of nausea and vomiting
     Dosage: [93]  0.25 MG DAILY, FREQ: ONCE
     Route: 042
     Dates: start: 20191002, end: 20191002
  20. BETANOID [BETAMETHASONE] [Concomitant]
     Indication: Allergy prophylaxis
     Dosage: 4 MILLIGRAM, BID
     Route: 048
     Dates: start: 20191003, end: 20191004
  21. RANITIDINE [Concomitant]
     Active Substance: RANITIDINE
     Indication: Prophylaxis
     Dosage: 50 MILLIGRAM, ONCE
     Route: 042
     Dates: start: 20191002, end: 20191002
  22. EMEND 125 [Concomitant]
     Indication: Nausea
     Dosage: [96]  125 MG DAILY, FREQ: ONCE
     Route: 048
     Dates: start: 20191002, end: 20191002
  23. EMEND [Concomitant]
     Active Substance: APREPITANT
     Indication: Nausea
     Dosage: [97]  80 MG DAILY, FREQ: QD
     Route: 048
     Dates: start: 20191003, end: 20191004

REACTIONS (4)
  - Renal impairment [Recovered/Resolved with Sequelae]
  - Renal tubular necrosis [Recovered/Resolved with Sequelae]
  - Tumour lysis syndrome [Recovered/Resolved]
  - Cerebrovascular accident [Recovered/Resolved]

NARRATIVE: CASE EVENT DATE: 20191013
